FAERS Safety Report 10967423 (Version 1)
Quarter: 2015Q1

REPORT INFORMATION
  Report Type: Spontaneous
  Country: US (occurrence: US)
  Receive Date: 20150330
  Receipt Date: 20150330
  Transmission Date: 20150721
  Serious: No
  Sender: FDA-Public Use
  Company Number: US-ASTRAZENECA-2014SE28560

PATIENT
  Sex: Female

DRUGS (1)
  1. NEXIUM [Suspect]
     Active Substance: ESOMEPRAZOLE MAGNESIUM
     Indication: GASTROOESOPHAGEAL REFLUX DISEASE
     Dosage: ONE IN THE MORNING, AND ONE IN THE AFTERNOON, AND ONE AT NIGHT, AND TAKE TWO MORE OVERNIGHT
     Route: 048

REACTIONS (4)
  - Gastrooesophageal reflux disease [Unknown]
  - Poor quality sleep [Unknown]
  - Drug ineffective [Unknown]
  - Overdose [Unknown]
